FAERS Safety Report 8203214-8 (Version None)
Quarter: 2012Q1

REPORT INFORMATION
  Report Type: 
  Country: None (occurrence: None)
  Receive Date: 20120312
  Receipt Date: 20120304
  Transmission Date: 20120608
  Serious: Yes (Other)
  Sender: FDA-Public Use
  Company Number: GR-ROCHE-1045663

PATIENT
  Age: 73 Year
  Sex: Female

DRUGS (1)
  1. BONIVA [Suspect]
     Indication: OSTEOPOROSIS

REACTIONS (4)
  - OSTEOARTHRITIS [None]
  - OSTEONECROSIS [None]
  - OSTEOMYELITIS [None]
  - RHEUMATOID ARTHRITIS [None]
